FAERS Safety Report 18416670 (Version 1)
Quarter: 2020Q4

REPORT INFORMATION
  Report Type: Spontaneous
  Country: FR (occurrence: FR)
  Receive Date: 20201022
  Receipt Date: 20201022
  Transmission Date: 20210114
  Serious: Yes (Hospitalization)
  Sender: FDA-Public Use
  Company Number: FR-INDIVIOR US-INDV-126875-2020

PATIENT
  Age: 11 Year
  Sex: Female

DRUGS (2)
  1. TOPALGIC                           /00599202/ [Suspect]
     Active Substance: TRAMADOL HYDROCHLORIDE
     Indication: PAIN
     Dosage: 15  DRP, UNK
     Route: 048
     Dates: start: 20201007
  2. TEMGESIC 0.2 MG TABLET [Suspect]
     Active Substance: BUPRENORPHINE HYDROCHLORIDE
     Indication: PAIN
     Dosage: 1 DOSAGE FORM
     Route: 060
     Dates: start: 20201007

REACTIONS (1)
  - Feeling abnormal [Recovered/Resolved]

NARRATIVE: CASE EVENT DATE: 20201007
